FAERS Safety Report 16664686 (Version 2)
Quarter: 2021Q1

REPORT INFORMATION
  Report Type: Spontaneous
  Country: NL (occurrence: NL)
  Receive Date: 20190803
  Receipt Date: 20210107
  Transmission Date: 20210419
  Serious: Yes (Hospitalization, Other)
  Sender: FDA-Public Use
  Company Number: NL-AUROBINDO-AUR-APL-2019-044831

PATIENT
  Age: 65 Year
  Sex: Female

DRUGS (3)
  1. BEVACIZUMAB. [Suspect]
     Active Substance: BEVACIZUMAB
     Indication: NON-SMALL CELL LUNG CANCER
     Dosage: 15 MILLIGRAM/KILOGRAM THRICE A WEEK,ON 19/JUN/2019, SHE RECEIVED THE MOST RECENT DOSE OF BEVACIZUMAB
     Route: 042
     Dates: start: 20190214
  2. CARBOPLATIN. [Suspect]
     Active Substance: CARBOPLATIN
     Indication: NON-SMALL CELL LUNG CANCER
     Dosage: 1 WITH UNKNOWN UNITS THRICE A WEEK ,AUC 6 ON 18/APR/2019, SHE RECEIVED THE MOST
     Route: 042
     Dates: start: 20190214
  3. PACLITAXEL. [Suspect]
     Active Substance: PACLITAXEL
     Indication: NON-SMALL CELL LUNG CANCER
     Dosage: 200 MILLIGRAM/SQ. METER,3 TIMES A WEEK,ON 18/APR/2019, SHE RECEIVED THE MOST RECENT DOSE OF
     Route: 042
     Dates: start: 20190214

REACTIONS (1)
  - Appendicitis perforated [Recovering/Resolving]

NARRATIVE: CASE EVENT DATE: 20190701
